FAERS Safety Report 25368221 (Version 1)
Quarter: 2025Q2

REPORT INFORMATION
  Report Type: Spontaneous
  Country: ES (occurrence: ES)
  Receive Date: 20250528
  Receipt Date: 20250528
  Transmission Date: 20250716
  Serious: Yes (Other)
  Sender: TAKEDA
  Company Number: None

PATIENT
  Age: 42 Year
  Sex: Male

DRUGS (6)
  1. VORTIOXETINE [Suspect]
     Active Substance: VORTIOXETINE
     Indication: Depression
     Dosage: 5 MILLIGRAM, QD
     Dates: start: 20221017, end: 20230130
  2. VORTIOXETINE [Suspect]
     Active Substance: VORTIOXETINE
     Dosage: 10 MILLIGRAM, QD
     Dates: start: 20230130, end: 20230523
  3. VORTIOXETINE [Suspect]
     Active Substance: VORTIOXETINE
     Dosage: 15 MILLIGRAM, QD
     Dates: start: 20230523, end: 20230728
  4. VORTIOXETINE [Suspect]
     Active Substance: VORTIOXETINE
     Dosage: 20 MILLIGRAM, QD
     Dates: start: 20230728, end: 20241022
  5. VORTIOXETINE [Suspect]
     Active Substance: VORTIOXETINE
     Dosage: 15 MILLIGRAM, QD
     Dates: start: 20241022, end: 20241106
  6. VORTIOXETINE [Suspect]
     Active Substance: VORTIOXETINE
     Dosage: 5 MILLIGRAM, QD
     Dates: start: 20241106, end: 20241121

REACTIONS (2)
  - Hypophosphataemia [Recovered/Resolved]
  - Hyperphosphaturia [Recovered/Resolved]

NARRATIVE: CASE EVENT DATE: 20231220
